FAERS Safety Report 5752324-3 (Version None)
Quarter: 2008Q2

REPORT INFORMATION
  Report Type: 
  Country: None (occurrence: None)
  Receive Date: 20080529
  Receipt Date: 20080527
  Transmission Date: 20081010
  Serious: Yes (Hospitalization)
  Sender: FDA-Public Use
  Company Number: US-ASTRAZENECA-2008UW10753

PATIENT
  Age: 71 Year
  Sex: Female
  Weight: 83.5 kg

DRUGS (7)
  1. ARIMIDEX [Suspect]
     Indication: BREAST CANCER
     Route: 048
     Dates: start: 20031201
  2. CARDIZEM [Concomitant]
  3. GLUCOSAMINE [Concomitant]
  4. CHONDROITIN [Concomitant]
  5. ANTIBIOTIC [Concomitant]
  6. BENADRYL [Concomitant]
  7. COUMADIN [Concomitant]

REACTIONS (2)
  - NEPHROLITHIASIS [None]
  - PULMONARY THROMBOSIS [None]
